FAERS Safety Report 6301803-9 (Version None)
Quarter: 2009Q3

REPORT INFORMATION
  Report Type: 
  Country: None (occurrence: None)
  Receive Date: 20090807
  Receipt Date: 20090731
  Transmission Date: 20100115
  Serious: Yes (Other)
  Sender: FDA-Public Use
  Company Number: BR-AVENTIS-200918058GDDC

PATIENT
  Age: 31 Year
  Sex: Female
  Weight: 55.9 kg

DRUGS (5)
  1. LANTUS [Suspect]
     Route: 058
     Dates: start: 20070402, end: 20090728
  2. OPTIPEN (INSULIN PUMP) [Suspect]
     Dates: start: 20070402, end: 20090728
  3. HUMALOG [Suspect]
     Dosage: DOSE: 6 IU BEFORE LUNCH AND DINNER
     Route: 058
     Dates: start: 20070402, end: 20090728
  4. ENALAPRIL MALEATE [Concomitant]
     Indication: HYPERTENSION
     Dosage: DOSE QUANTITY: 2
     Route: 048
     Dates: start: 20090601
  5. LASIX [Concomitant]
     Dosage: DOSE QUANTITY: 1
     Route: 048
     Dates: start: 20060101

REACTIONS (10)
  - BLINDNESS [None]
  - BONE PAIN [None]
  - EYE HAEMORRHAGE [None]
  - FEELING ABNORMAL [None]
  - HYPERGLYCAEMIA [None]
  - HYPERHIDROSIS [None]
  - HYPOGLYCAEMIA [None]
  - TREMOR [None]
  - VISION BLURRED [None]
  - WEIGHT INCREASED [None]
